FAERS Safety Report 4347862-4 (Version None)
Quarter: 2004Q2

REPORT INFORMATION
  Report Type: 
  Country: None (occurrence: None)
  Receive Date: 20040422
  Receipt Date: 20040402
  Transmission Date: 20050107
  Serious: Yes (Other)
  Sender: FDA-Public Use
  Company Number: C-04-0018

PATIENT
  Sex: Male

DRUGS (1)
  1. LINDANE SHAMPOO, USP 1% (MORTON GROVE PHARMACEUTICALS, INC) [Suspect]
     Indication: LICE INFESTATION
     Dates: start: 19980519

REACTIONS (2)
  - IMMUNOSUPPRESSION [None]
  - MEDICATION ERROR [None]
